FAERS Safety Report 15298308 (Version 2)
Quarter: 2019Q1

REPORT INFORMATION
  Report Type: Report from Study
  Country: US (occurrence: US)
  Receive Date: 20180820
  Receipt Date: 20190322
  Transmission Date: 20190417
  Serious: Yes (Death, Hospitalization)
  Sender: FDA-Public Use
  Company Number: US-ACTELION-A-NJ2018-177510

PATIENT
  Age: 66 Year
  Sex: Female
  Weight: 88.89 kg

DRUGS (2)
  1. COUMADIN [Concomitant]
     Active Substance: WARFARIN SODIUM
  2. TRACLEER [Suspect]
     Active Substance: BOSENTAN
     Indication: PULMONARY ARTERIAL HYPERTENSION
     Dosage: 125 MG, BID
     Route: 048

REACTIONS (5)
  - Death [Fatal]
  - Dehydration [Unknown]
  - Dyspnoea [Unknown]
  - Cystitis [Unknown]
  - Hospice care [Unknown]

NARRATIVE: CASE EVENT DATE: 20190317
